FAERS Safety Report 8403363-5 (Version None)
Quarter: 2012Q2

REPORT INFORMATION
  Report Type: 
  Country: None (occurrence: None)
  Receive Date: 20120601
  Receipt Date: 20120529
  Transmission Date: 20120825
  Serious: No
  Sender: FDA-Public Use
  Company Number: US-PFIZER INC-2012128778

PATIENT
  Sex: Male
  Weight: 102 kg

DRUGS (11)
  1. LOVAZA [Concomitant]
     Dosage: 3 CAPSULES DAILY
  2. AMLODIPINE [Concomitant]
     Dosage: 10 MG, DAILY
  3. BUSPAR [Concomitant]
     Dosage: 5 MG, 2X/DAY
  4. FIBERCON [Concomitant]
     Dosage: UNK, 4 TABLETS DAILY
  5. DICYCLOMINE [Concomitant]
     Dosage: 10 MG, AS NEEDED
  6. METAXALONE [Suspect]
     Indication: SPONDYLITIS
     Dosage: 1600 MG, 2X/DAY
  7. ATENOLOL [Concomitant]
     Dosage: 50 MG, DAILY
  8. ASPIRIN [Concomitant]
     Dosage: 81 MG, DAILY
  9. ZOLOFT [Concomitant]
     Dosage: 75 MG, DAILY
  10. MULTI-VITAMINS [Concomitant]
     Dosage: 1 DF (1 TABLET)
  11. METAXALONE [Suspect]
     Indication: MIGRAINE
     Dosage: 800 MG, 2X/DAY
     Dates: start: 20120509

REACTIONS (5)
  - MUSCULOSKELETAL STIFFNESS [None]
  - HEADACHE [None]
  - PRODUCT SUBSTITUTION ISSUE [None]
  - DRUG INEFFECTIVE [None]
  - DRUG EFFECT DECREASED [None]
